FAERS Safety Report 16938098 (Version 1)
Quarter: 2019Q4

REPORT INFORMATION
  Report Type: Other
  Country: TR (occurrence: TR)
  Receive Date: 20191018
  Receipt Date: 20191018
  Transmission Date: 20200122
  Serious: Yes (Hospitalization)
  Sender: FDA-Public Use
  Company Number: TR-B.BRAUN MEDICAL INC.-2075841

PATIENT
  Age: 51 Year
  Sex: Female

DRUGS (1)
  1. CEFUROXIME FOR INJECTION USP AND DEXTROSE INJECTION USP [Suspect]
     Active Substance: CEFUROXIME SODIUM
     Indication: TOOTH ABSCESS
     Route: 030

REACTIONS (2)
  - Ischaemia [None]
  - Anaphylactic shock [None]
